FAERS Safety Report 4449609-X (Version None)
Quarter: 2004Q3

REPORT INFORMATION
  Report Type: 
  Country: None (occurrence: None)
  Receive Date: 20040913
  Receipt Date: 20040902
  Transmission Date: 20050211
  Serious: Yes (Death)
  Sender: FDA-Public Use
  Company Number: 2004-09-0158

PATIENT
  Age: 55 Year
  Sex: Female

DRUGS (2)
  1. TEMODAR [Suspect]
     Dosage: 75 MG/M^2 ORAL
     Route: 048
  2. RADIATION THERAPY NO DOSE FORM [Suspect]
     Dosage: X-RAY THERAPY

REACTIONS (2)
  - ANAEMIA [None]
  - THROMBOCYTOPENIA [None]
